FAERS Safety Report 4524760-4 (Version None)
Quarter: 2004Q4

REPORT INFORMATION
  Report Type: 
  Country: None (occurrence: None)
  Receive Date: 20041213
  Receipt Date: 20041206
  Transmission Date: 20050328
  Serious: Yes (Death)
  Sender: FDA-Public Use
  Company Number: GB-BRISTOL-MYERS SQUIBB COMPANY-12786083

PATIENT

DRUGS (3)
  1. CISPLATIN [Suspect]
     Indication: GERM CELL CANCER
  2. ETOPOSIDE [Suspect]
     Indication: GERM CELL CANCER
  3. IFOSFAMIDE [Suspect]
     Indication: GERM CELL CANCER

REACTIONS (1)
  - PULMONARY EMBOLISM [None]
